FAERS Safety Report 10059917 (Version 1)
Quarter: 2014Q2

REPORT INFORMATION
  Report Type: Report from Study
  Country: BR (occurrence: BR)
  Receive Date: 20140404
  Receipt Date: 20140404
  Transmission Date: 20141212
  Serious: Yes (Other)
  Sender: FDA-Public Use
  Company Number: BR-BAYER-2014-047923

PATIENT
  Age: 16 Year
  Sex: Male

DRUGS (2)
  1. BETAFERON [Suspect]
     Indication: MULTIPLE SCLEROSIS
     Dosage: 1 ML, QOD
     Route: 058
     Dates: start: 2013
  2. VITAMIN D [Concomitant]
     Indication: PROPHYLAXIS
     Dosage: 6 GTT, QD
     Route: 048

REACTIONS (5)
  - Multiple sclerosis relapse [Not Recovered/Not Resolved]
  - Eye pain [Not Recovered/Not Resolved]
  - Eye colour change [Not Recovered/Not Resolved]
  - Cough [Recovered/Resolved]
  - Off label use [None]
